FAERS Safety Report 8893419 (Version 4)
Quarter: 2013Q3

REPORT INFORMATION
  Report Type: Report from Study
  Country: AR (occurrence: AR)
  Receive Date: 20121108
  Receipt Date: 20130912
  Transmission Date: 20140515
  Serious: Yes (Hospitalization, Other)
  Sender: FDA-Public Use
  Company Number: PHHY2012AR102126

PATIENT
  Age: 87 Year
  Sex: Female

DRUGS (4)
  1. DIOVAN [Suspect]
     Indication: HYPERTENSION
     Dosage: 80 MG,IN THE MORNING
     Dates: start: 2004
  2. DIOVAN [Suspect]
     Indication: ARRHYTHMIA
  3. DIOVAN D [Suspect]
     Indication: HYPERTENSION
     Dosage: 1 DF (160/25 MG), IN THE NIGHT
     Dates: start: 2004
  4. DIOVAN D [Suspect]
     Indication: ARRHYTHMIA

REACTIONS (6)
  - Arterial occlusive disease [Recovered/Resolved]
  - Cholelithiasis [Not Recovered/Not Resolved]
  - Diabetes mellitus [Unknown]
  - Nephrolithiasis [Recovered/Resolved]
  - Back pain [Recovered/Resolved]
  - Blood pressure increased [Not Recovered/Not Resolved]
